FAERS Safety Report 7375894-0 (Version None)
Quarter: 2011Q1

REPORT INFORMATION
  Report Type: 
  Country: None (occurrence: None)
  Receive Date: 20110325
  Receipt Date: 20110316
  Transmission Date: 20110831
  Serious: Yes (Hospitalization)
  Sender: FDA-Public Use
  Company Number: B0699350A

PATIENT
  Age: 67 Year
  Sex: Male
  Weight: 90 kg

DRUGS (9)
  1. GLUCOPHAGE [Concomitant]
  2. SYNTHROID [Concomitant]
  3. AVANDIA [Suspect]
     Dosage: 4MG TWICE PER DAY
     Route: 048
     Dates: start: 20030101, end: 20090101
  4. GLIPIZIDE [Concomitant]
  5. LOPRESSOR [Concomitant]
  6. ULTRAM [Concomitant]
  7. LOPID [Concomitant]
  8. ZOCOR [Concomitant]
  9. LYRICA [Concomitant]

REACTIONS (4)
  - CORONARY ARTERY DISEASE [None]
  - MYOCARDIAL INFARCTION [None]
  - CARDIOGENIC SHOCK [None]
  - CARDIAC FAILURE CONGESTIVE [None]
